FAERS Safety Report 14913701 (Version 9)
Quarter: 2019Q1

REPORT INFORMATION
  Report Type: Other
  Country: ES (occurrence: ES)
  Receive Date: 20180518
  Receipt Date: 20190308
  Transmission Date: 20190417
  Serious: Yes (Hospitalization, Other)
  Sender: FDA-Public Use
  Company Number: ES-ASTELLAS-2018US022615

PATIENT
  Age: 87 Year
  Sex: Male

DRUGS (20)
  1. FENTANYL                           /00174602/ [Suspect]
     Active Substance: FENTANYL
     Indication: DYSPNOEA
     Dosage: UNK, UNKNOWN FREQ.
     Route: 048
  2. BUDESONIDE. [Suspect]
     Active Substance: BUDESONIDE
     Indication: PRODUCT USED FOR UNKNOWN INDICATION
     Route: 055
  3. FLUOXETINE [Suspect]
     Active Substance: FLUOXETINE HYDROCHLORIDE
     Indication: PRODUCT USED FOR UNKNOWN INDICATION
     Route: 065
  4. FUROSEMIDUM                        /00032601/ [Suspect]
     Active Substance: FUROSEMIDE SODIUM
     Indication: PRODUCT USED FOR UNKNOWN INDICATION
     Route: 048
  5. MIRABEGRON [Suspect]
     Active Substance: MIRABEGRON
     Indication: PRODUCT USED FOR UNKNOWN INDICATION
     Route: 065
  6. XALATAN [Concomitant]
     Active Substance: LATANOPROST
     Indication: PRODUCT USED FOR UNKNOWN INDICATION
     Route: 065
  7. BREAKYL [Suspect]
     Active Substance: FENTANYL
     Indication: DYSPNOEA
     Dosage: UNK UNK, UNKNOWN FREQ.
     Route: 048
  8. IPRATROPIUM BROMIDE. [Suspect]
     Active Substance: IPRATROPIUM BROMIDE
     Indication: PRODUCT USED FOR UNKNOWN INDICATION
     Route: 045
  9. ROCOZ                              /00848101/ [Concomitant]
     Active Substance: SIMVASTATIN
     Indication: PRODUCT USED FOR UNKNOWN INDICATION
     Dosage: 25 MG, TID (2-2-1)
     Route: 065
  10. XILIARX [Concomitant]
     Active Substance: VILDAGLIPTIN
     Indication: PRODUCT USED FOR UNKNOWN INDICATION
     Route: 065
  11. VILDAGLIPTIN [Suspect]
     Active Substance: VILDAGLIPTIN
     Route: 048
  12. FUROSEMIDUM                        /00032601/ [Suspect]
     Active Substance: FUROSEMIDE SODIUM
     Route: 065
  13. VILDAGLIPTIN [Suspect]
     Active Substance: VILDAGLIPTIN
     Indication: TYPE 2 DIABETES MELLITUS
     Route: 048
  14. PULMICORT TURBUHALER [Concomitant]
     Active Substance: BUDESONIDE
     Indication: PRODUCT USED FOR UNKNOWN INDICATION
     Dosage: UNK UNK, TWICE DAILY
     Route: 065
  15. QUETIAPINE. [Suspect]
     Active Substance: QUETIAPINE
     Indication: PRODUCT USED FOR UNKNOWN INDICATION
     Dosage: 25 MG, THRICE DAILY (2-2-1)
     Route: 048
  16. LATANOPROST. [Suspect]
     Active Substance: LATANOPROST
     Indication: PRODUCT USED FOR UNKNOWN INDICATION
     Dosage: 2 DROPS (GTT), ONCE DAILY
     Route: 065
  17. APIXABAN [Suspect]
     Active Substance: APIXABAN
     Indication: CEREBROVASCULAR ACCIDENT PROPHYLAXIS
     Route: 065
  18. APIXABAN [Suspect]
     Active Substance: APIXABAN
     Route: 065
  19. COMBIPRASAL [Suspect]
     Active Substance: ALBUTEROL SULFATE\IPRATROPIUM BROMIDE
     Indication: PRODUCT USED FOR UNKNOWN INDICATION
     Dosage: 1 DF, EVERY SIX HOURS, DRUG INTERVAL DOSAGE UNIT NUMBER:6HOUR
     Route: 045
  20. SEGURIL [Concomitant]
     Active Substance: FUROSEMIDE
     Indication: PRODUCT USED FOR UNKNOWN INDICATION
     Dosage: UNK UNK, UNKNOWN FREQ.
     Route: 065

REACTIONS (15)
  - Respiratory failure [Recovered/Resolved]
  - Heart rate abnormal [Unknown]
  - Arrhythmia [Unknown]
  - White blood cell count abnormal [Unknown]
  - Dyspnoea [Recovered/Resolved]
  - Bone marrow oedema [Unknown]
  - Bronchiectasis [Unknown]
  - Haemoglobin abnormal [Unknown]
  - Tachypnoea [Unknown]
  - Oedema peripheral [Unknown]
  - Respiratory tract infection [Unknown]
  - Peripheral venous disease [Unknown]
  - Product use in unapproved indication [Unknown]
  - Blood pressure abnormal [Unknown]
  - C-reactive protein abnormal [Unknown]
